FAERS Safety Report 17047770 (Version 1)
Quarter: 2019Q4

REPORT INFORMATION
  Report Type: Spontaneous
  Country: US (occurrence: US)
  Receive Date: 20191119
  Receipt Date: 20191119
  Transmission Date: 20200122
  Serious: No
  Sender: FDA-Public Use
  Company Number: US-SHIRE-US201939750

PATIENT
  Sex: Female

DRUGS (1)
  1. GATTEX [Suspect]
     Active Substance: TEDUGLUTIDE\WATER
     Indication: PRODUCT USED FOR UNKNOWN INDICATION
     Dosage: UNK
     Route: 058

REACTIONS (9)
  - Swelling face [Unknown]
  - Peripheral swelling [Unknown]
  - Vision blurred [Unknown]
  - Headache [Unknown]
  - Malabsorption [Unknown]
  - Weight increased [Unknown]
  - Pain [Unknown]
  - Polyuria [Unknown]
  - Periorbital swelling [Unknown]
